FAERS Safety Report 9523160 (Version 1)
Quarter: 2013Q3

REPORT INFORMATION
  Report Type: Spontaneous
  Country: IT (occurrence: IT)
  Receive Date: 20130913
  Receipt Date: 20130913
  Transmission Date: 20140515
  Serious: Yes (Other)
  Sender: FDA-Public Use
  Company Number: IT-TEVA-430184ISR

PATIENT
  Age: 74 Year
  Sex: Female
  Weight: 65 kg

DRUGS (7)
  1. FLUOROURACILE TEVA [Suspect]
     Indication: ADENOCARCINOMA OF COLON
     Dosage: 519 MILLIGRAM DAILY;
     Route: 040
     Dates: start: 20121212, end: 20130117
  2. FLUOROURACILE TEVA [Suspect]
     Dosage: 178.5 MILLIGRAM DAILY;
     Route: 042
     Dates: start: 20121212, end: 20130117
  3. OXALIPLATINO HOSPIRA [Suspect]
     Indication: ADENOCARCINOMA OF COLON
     Dosage: 110.3 MILLIGRAM DAILY;
     Route: 042
     Dates: start: 20121212, end: 20130117
  4. LEVOFOLINATE [Suspect]
     Indication: ADENOCARCINOMA OF COLON
     Dosage: 129.8 MILLIGRAM DAILY;
     Route: 042
     Dates: start: 20121212, end: 20130117
  5. RANIDIL [Concomitant]
     Dosage: 50 MILLIGRAM DAILY;
     Route: 042
  6. ONDANSETRONE HIKMA [Concomitant]
     Dosage: 8 MILLIGRAM DAILY;
     Route: 042
  7. SOLDESAM [Concomitant]
     Dosage: 8 MILLIGRAM DAILY;
     Route: 042

REACTIONS (9)
  - Dyspnoea [Unknown]
  - Fatigue [Unknown]
  - Nausea [Unknown]
  - Vomiting [Unknown]
  - Stomatitis [Unknown]
  - Diarrhoea [Unknown]
  - Pain [Unknown]
  - Formication [Unknown]
  - Skin lesion [Unknown]
